FAERS Safety Report 9307137 (Version 1)
Quarter: 2013Q2

REPORT INFORMATION
  Report Type: Spontaneous
  Country: BR (occurrence: BR)
  Receive Date: 20130524
  Receipt Date: 20130524
  Transmission Date: 20140414
  Serious: Yes (Death)
  Sender: FDA-Public Use
  Company Number: BR-AMGEN-BRASP2012069970

PATIENT
  Age: 57 Year
  Sex: Female
  Weight: 90 kg

DRUGS (7)
  1. ENBREL [Suspect]
     Indication: RHEUMATOID ARTHRITIS
     Dosage: 25 MG, 2X/WEEK
     Route: 058
     Dates: start: 201207
  2. CALCIUM CARBONATE [Concomitant]
     Dosage: UNK UNK, UNK
  3. FOLIC ACID [Concomitant]
     Dosage: UNK UNK, UNK
  4. OMEPRAZOLE [Concomitant]
     Dosage: UNK UNK, UNK
  5. PREDNISONE [Concomitant]
     Dosage: UNK UNK, UNK
  6. NIMESULIDE [Concomitant]
     Dosage: UNK UNK, UNK
  7. METHOTREXATE [Concomitant]
     Dosage: 25 MG, UNK

REACTIONS (3)
  - Death [Fatal]
  - Local swelling [Not Recovered/Not Resolved]
  - Pain [Not Recovered/Not Resolved]
